FAERS Safety Report 7346593-6 (Version None)
Quarter: 2011Q1

REPORT INFORMATION
  Report Type: 
  Country: None (occurrence: None)
  Receive Date: 20110311
  Receipt Date: 20110304
  Transmission Date: 20110831
  Serious: Yes (Hospitalization)
  Sender: FDA-Public Use
  Company Number: JP-GENZYME-200914537BYL

PATIENT
  Sex: Female

DRUGS (3)
  1. FLUDARA [Suspect]
     Indication: ACUTE MYELOID LEUKAEMIA
     Dosage: UNK, UNK
     Route: 065
  2. IDARUBICIN [Concomitant]
     Indication: ACUTE MYELOID LEUKAEMIA
     Dosage: UNK, UNK
     Route: 042
  3. CYTARABINE [Concomitant]
     Indication: ACUTE MYELOID LEUKAEMIA
     Dosage: UNK, UNK
     Route: 041

REACTIONS (1)
  - DISSEMINATED INTRAVASCULAR COAGULATION [None]
